FAERS Safety Report 25925731 (Version 1)
Quarter: 2025Q4

REPORT INFORMATION
  Report Type: Spontaneous
  Country: US (occurrence: None)
  Receive Date: 20251014
  Receipt Date: 20251014
  Transmission Date: 20260117
  Serious: Yes (Disabling)
  Sender: FDA-CTU
  Company Number: None

PATIENT
  Age: 29 Year
  Sex: Female
  Weight: 49.5 kg

DRUGS (2)
  1. LEXAPRO [Suspect]
     Active Substance: ESCITALOPRAM OXALATE
     Indication: Anxiety disorder
     Dosage: FREQUENCY : DAILY;?
     Route: 048
     Dates: start: 20240917, end: 20240917
  2. XANAX [Concomitant]
     Active Substance: ALPRAZOLAM

REACTIONS (8)
  - Hyperhidrosis [None]
  - Temperature intolerance [None]
  - Suicidal ideation [None]
  - Mood swings [None]
  - Decreased appetite [None]
  - Mania [None]
  - Depression [None]
  - Menstruation irregular [None]

NARRATIVE: CASE EVENT DATE: 20240917
